FAERS Safety Report 10141671 (Version 2)
Quarter: 2014Q2

REPORT INFORMATION
  Report Type: Spontaneous
  Country: US (occurrence: US)
  Receive Date: 20140429
  Receipt Date: 20140430
  Transmission Date: 20141212
  Serious: No
  Sender: FDA-Public Use
  Company Number: US-ASTRAZENECA-2014SE16660

PATIENT
  Age: 24718 Day
  Sex: Female

DRUGS (3)
  1. PULMICORT FLEXHALER [Suspect]
     Route: 055
     Dates: start: 20131030
  2. VENTOLIN INHALER [Concomitant]
     Dosage: 2-4 PUFFS EVERY 4-6 PRN
     Route: 055
     Dates: start: 20110421
  3. PRAVASTATIN [Concomitant]
     Route: 048
     Dates: start: 20110506

REACTIONS (4)
  - Product taste abnormal [Unknown]
  - Glossodynia [Unknown]
  - Off label use [Unknown]
  - Intentional product misuse [Unknown]
